FAERS Safety Report 5844732-7 (Version None)
Quarter: 2008Q3

REPORT INFORMATION
  Report Type: 
  Country: None (occurrence: None)
  Receive Date: 20080812
  Receipt Date: 20080801
  Transmission Date: 20090109
  Serious: Yes (Hospitalization, Other)
  Sender: FDA-Public Use
  Company Number: 2008-GWUS-0547

PATIENT
  Age: 52 Year
  Sex: Female

DRUGS (2)
  1. ALDARA [Suspect]
     Indication: BASAL CELL CARCINOMA
     Dosage: APPLICATION - 5XW - TOPICAL
     Route: 061
     Dates: start: 20080615, end: 20080623
  2. ALDARA [Suspect]
     Indication: BIOPSY
     Dosage: APPLICATION - 5XW - TOPICAL
     Route: 061
     Dates: start: 20080615, end: 20080623

REACTIONS (7)
  - ANAEMIA [None]
  - CELLULITIS [None]
  - CLOSTRIDIAL INFECTION [None]
  - COLITIS [None]
  - RASH GENERALISED [None]
  - SKIN LESION [None]
  - STAPHYLOCOCCAL INFECTION [None]
